FAERS Safety Report 8874001 (Version 1)
Quarter: 2012Q4

REPORT INFORMATION
  Report Type: 
  Country: DE (occurrence: DE)
  Receive Date: 20121030
  Receipt Date: 20121030
  Transmission Date: 20130627
  Serious: Yes (Other)
  Sender: FDA-Public Use
  Company Number: DE-PFIZER INC-2012263143

PATIENT
  Age: 42 Year
  Sex: Male
  Weight: 81 kg

DRUGS (2)
  1. SERTRALINE HCL [Suspect]
     Indication: DEPRESSION
     Dosage: 50 mg, previous dose, was raised to 100 mg 6 weeks before event
     Route: 048
  2. SERTRALINE HCL [Suspect]
     Dosage: 100 mg, dose at time of event
     Route: 048

REACTIONS (5)
  - Arrhythmia [Recovered/Resolved]
  - Ventricular tachycardia [Unknown]
  - Cardiac arrest [Unknown]
  - Paraesthesia [Unknown]
  - Dizziness [Unknown]
